FAERS Safety Report 4753956-1 (Version None)
Quarter: 2005Q3

REPORT INFORMATION
  Report Type: 
  Country: None (occurrence: None)
  Receive Date: 20050826
  Receipt Date: 20050813
  Transmission Date: 20060218
  Serious: Yes (Disabling, Other)
  Sender: FDA-Public Use
  Company Number: 2005115301

PATIENT
  Age: 73 Year
  Sex: Female
  Weight: 81.1939 kg

DRUGS (9)
  1. LIPITOR [Suspect]
     Indication: BLOOD CHOLESTEROL
     Dosage: 10 MG (10 MG, 1 IN 1 D), ORAL
     Route: 048
     Dates: start: 20041101, end: 20050101
  2. LIPITOR [Suspect]
     Indication: BLOOD TRIGLYCERIDES
     Dosage: 10 MG (10 MG, 1 IN 1 D), ORAL
     Route: 048
     Dates: start: 20041101, end: 20050101
  3. LIPITOR [Suspect]
     Indication: PROPHYLAXIS
     Dosage: 10 MG (10 MG, 1 IN 1 D), ORAL
     Route: 048
     Dates: start: 20041101, end: 20050101
  4. BENICAR [Concomitant]
  5. HYDROXYCHLOROQUINE SULFATE [Concomitant]
  6. HYDROCHLOROTHIAZIDE [Concomitant]
  7. ALL OTHER THERAPEUTIC PRODUCTS (ALL OTHER THERAPEUTIC PRODUCTS) [Concomitant]
  8. METHOTREXATE [Concomitant]
  9. REMICADE [Concomitant]

REACTIONS (9)
  - ABASIA [None]
  - BLOOD DISORDER [None]
  - DIABETES MELLITUS [None]
  - MUSCLE ATROPHY [None]
  - MUSCLE SPASMS [None]
  - MYALGIA [None]
  - PULMONARY THROMBOSIS [None]
  - THERAPY NON-RESPONDER [None]
  - THROMBOSIS [None]
